FAERS Safety Report 4996102-1 (Version None)
Quarter: 2006Q2

REPORT INFORMATION
  Report Type: 
  Country: None (occurrence: None)
  Receive Date: 20060508
  Receipt Date: 20060406
  Transmission Date: 20061013
  Serious: Yes (Hospitalization, Other)
  Sender: FDA-Public Use
  Company Number: US-MERCK-0604USA00934

PATIENT
  Age: 69 Year
  Sex: Male
  Weight: 153 kg

DRUGS (7)
  1. VIOXX [Suspect]
     Indication: INTERVERTEBRAL DISC DEGENERATION
     Route: 048
     Dates: start: 19990101, end: 20040930
  2. LOPRESSOR [Concomitant]
     Route: 065
  3. PLAVIX [Concomitant]
     Route: 065
  4. PRILOSEC [Concomitant]
     Route: 065
  5. DETROL LA [Concomitant]
     Route: 065
  6. MEVACOR [Concomitant]
     Route: 065
  7. VIOXX [Suspect]
     Indication: OSTEOARTHRITIS
     Route: 048
     Dates: start: 19990101, end: 20040930

REACTIONS (9)
  - ARTHROPATHY [None]
  - CARDIAC DISORDER [None]
  - CHEST PAIN [None]
  - CORONARY ARTERY STENOSIS [None]
  - HYPERLIPIDAEMIA [None]
  - MUSCLE INJURY [None]
  - MYOCARDIAL INFARCTION [None]
  - PROSTATIC DISORDER [None]
  - RECTAL HAEMORRHAGE [None]
